FAERS Safety Report 9058061 (Version 1)
Quarter: 2013Q1

REPORT INFORMATION
  Report Type: Spontaneous
  Country: US (occurrence: US)
  Receive Date: 20130211
  Receipt Date: 20130211
  Transmission Date: 20140127
  Serious: Yes (Hospitalization)
  Sender: FDA-Public Use
  Company Number: US-AMGEN-USASP2013000419

PATIENT
  Sex: Male

DRUGS (1)
  1. XGEVA [Suspect]
     Indication: PROSTATE CANCER
     Dosage: 120 MG, Q4WK
     Route: 058
     Dates: start: 20120725

REACTIONS (1)
  - Hypocalcaemia [Recovered/Resolved]
